FAERS Safety Report 15299301 (Version 1)
Quarter: 2018Q3

REPORT INFORMATION
  Report Type: Spontaneous
  Country: US (occurrence: US)
  Receive Date: 20180808
  Receipt Date: 20180808
  Transmission Date: 20181010
  Serious: Yes (Hospitalization, Other)
  Sender: FDA-Public Use
  Company Number: None

PATIENT
  Age: 56 Year
  Sex: Female
  Weight: 87.75 kg

DRUGS (5)
  1. VALSARTAN 320 MG TAB SOLC [Suspect]
     Active Substance: VALSARTAN
     Indication: HYPERTENSION
     Dosage: ?          QUANTITY:320 TABLET(S);?
     Route: 048
     Dates: start: 20070101, end: 20180723
  2. STENT IN HEART ARTERY [Concomitant]
  3. SUGARLESS COUGH DROPS [Concomitant]
  4. TYLENOL [Concomitant]
     Active Substance: ACETAMINOPHEN
  5. EFFEXOR [Concomitant]
     Active Substance: VENLAFAXINE HYDROCHLORIDE

REACTIONS (4)
  - Lymphadenopathy [None]
  - Product quality issue [None]
  - Liver injury [None]
  - Renal cyst [None]

NARRATIVE: CASE EVENT DATE: 20160516
